FAERS Safety Report 11243184 (Version 4)
Quarter: 2015Q3

REPORT INFORMATION
  Report Type: Spontaneous
  Country: BR (occurrence: BR)
  Receive Date: 20150707
  Receipt Date: 20150810
  Transmission Date: 20151125
  Serious: Yes (Other)
  Sender: FDA-Public Use
  Company Number: BR-PFIZER INC-2009244240

PATIENT
  Age: 55 Year
  Sex: Female
  Weight: 79 kg

DRUGS (8)
  1. PURAN [Concomitant]
     Active Substance: LEVOTHYROXINE SODIUM
     Indication: HYPOTHYROIDISM
     Dosage: 1 TABLET PER DAY
     Dates: start: 1975
  2. NORVASC [Suspect]
     Active Substance: AMLODIPINE BESYLATE
     Indication: HYPERTENSION
     Dosage: 5 MG (1 TABLET), 1X/DAY
     Route: 048
     Dates: start: 200904, end: 2013
  3. RIVOTRIL [Concomitant]
     Active Substance: CLONAZEPAM
     Indication: RELAXATION THERAPY
     Dosage: 2 TABLETS PER DAY
     Dates: start: 2010
  4. OMEPRAZOLE. [Concomitant]
     Active Substance: OMEPRAZOLE
     Indication: GASTRITIS
     Dosage: 2 TABLETS PER DAY
     Dates: start: 2013
  5. DORMONID [Concomitant]
     Active Substance: MIDAZOLAM MALEATE
     Indication: SLEEP DISORDER
     Dosage: 1 TABLET
     Dates: start: 201411
  6. OMEPRAZOLE. [Concomitant]
     Active Substance: OMEPRAZOLE
     Indication: BACTERIAL TEST POSITIVE
  7. TIBOLONE [Concomitant]
     Active Substance: TIBOLONE
     Dosage: UNK
     Dates: start: 2007
  8. OLMETEC [Suspect]
     Active Substance: OLMESARTAN MEDOXOMIL
     Indication: HYPERTENSION
     Dosage: 20 MG, 2X/DAY
     Route: 048
     Dates: start: 200904

REACTIONS (5)
  - Headache [Recovered/Resolved]
  - Myocardial infarction [Recovered/Resolved]
  - Left ventricle outflow tract obstruction [Recovered/Resolved]
  - Dizziness postural [Recovered/Resolved]
  - Fluid retention [Recovered/Resolved]

NARRATIVE: CASE EVENT DATE: 200907
